FAERS Safety Report 8932649 (Version 2)
Quarter: 2012Q4

REPORT INFORMATION
  Report Type: 
  Country: IE (occurrence: IE)
  Receive Date: 20121128
  Receipt Date: 20121218
  Transmission Date: 20130627
  Serious: No
  Sender: FDA-Public Use
  Company Number: IE-MERCK-1211IRL010163

PATIENT

DRUGS (1)
  1. CANCIDAS [Suspect]
     Dosage: UNK
     Route: 042
     Dates: end: 20121024

REACTIONS (4)
  - Renal disorder [Unknown]
  - Hypokalaemia [Not Recovered/Not Resolved]
  - Hypomagnesaemia [Not Recovered/Not Resolved]
  - Blood potassium abnormal [Unknown]
